FAERS Safety Report 6341678-5 (Version None)
Quarter: 2009Q3

REPORT INFORMATION
  Report Type: 
  Country: None (occurrence: None)
  Receive Date: 20090902
  Receipt Date: 20090902
  Transmission Date: 20100115
  Serious: No
  Sender: FDA-Public Use
  Company Number: None

PATIENT
  Age: 63 Year
  Sex: Female
  Weight: 94 kg

DRUGS (1)
  1. BUPIVACAINE [Suspect]
     Dosage: 11 MG
     Dates: start: 20090901

REACTIONS (1)
  - ANAESTHETIC COMPLICATION [None]
